FAERS Safety Report 7737731-1 (Version None)
Quarter: 2011Q3

REPORT INFORMATION
  Report Type: 
  Country: None (occurrence: None)
  Receive Date: 20110817
  Receipt Date: 20110317
  Transmission Date: 20111222
  Serious: Yes (Life-Threatening, Hospitalization, Other)
  Sender: FDA-Public Use
  Company Number: 201110054

PATIENT
  Age: 47 Year
  Sex: Female

DRUGS (4)
  1. FENTANYL-100 [Concomitant]
  2. BUPIVACAINE HCL [Concomitant]
  3. LIORESAL [Suspect]
     Indication: MUSCLE SPASTICITY
     Dosage: 693.75 MCG, DAILY, INTRATHECAL
     Route: 037
  4. HYDROMORPHONE HCL [Concomitant]

REACTIONS (4)
  - INTENSIVE CARE [None]
  - MECHANICAL VENTILATION [None]
  - UNDERDOSE [None]
  - THERAPEUTIC RESPONSE DECREASED [None]
